FAERS Safety Report 19771120 (Version 1)
Quarter: 2021Q3

REPORT INFORMATION
  Report Type: Spontaneous
  Country: CA (occurrence: CA)
  Receive Date: 20210901
  Receipt Date: 20210901
  Transmission Date: 20211014
  Serious: Yes (Other)
  Sender: FDA-Public Use
  Company Number: CA-ACCORD-236785

PATIENT
  Age: 94 Year
  Sex: Female

DRUGS (6)
  1. PREGABALIN. [Suspect]
     Active Substance: PREGABALIN
     Indication: BACK PAIN
  2. HYDROMORPHONE [Suspect]
     Active Substance: HYDROMORPHONE
     Indication: PAIN
     Route: 048
  3. GABAPENTIN. [Suspect]
     Active Substance: GABAPENTIN
     Indication: BACK PAIN
  4. HYDROMORPHONE/HYDROMORPHONE HYDROCHLORIDE [Suspect]
     Active Substance: HYDROMORPHONE
     Indication: BACK PAIN
     Route: 048
  5. QUETIAPINE. [Suspect]
     Active Substance: QUETIAPINE
     Indication: SCREAMING
     Dosage: 1 EVERY 1 DAYS
     Route: 048
  6. TEVA DULOXETINE [Suspect]
     Active Substance: DULOXETINE
     Indication: BACK PAIN
     Dosage: 1 EVERY 1 DAYS
     Route: 048

REACTIONS (6)
  - Confusional state [Recovered/Resolved]
  - Drug ineffective [Unknown]
  - Delirium [Recovered/Resolved]
  - Pain [Recovered/Resolved]
  - Off label use [Unknown]
  - Sedation [Recovered/Resolved]
